FAERS Safety Report 8383101 (Version 2)
Quarter: 2013Q2

REPORT INFORMATION
  Report Type: Spontaneous
  Country: IT (occurrence: IT)
  Receive Date: 20120130
  Receipt Date: 20130522
  Transmission Date: 20140414
  Serious: Yes (Hospitalization)
  Sender: FDA-Public Use
  Company Number: PHHY2012IT004517

PATIENT
  Age: 1 Week
  Sex: Male

DRUGS (1)
  1. METHERGINE [Suspect]
     Dosage: 15 DRP
     Route: 048
     Dates: start: 20111024, end: 20111024

REACTIONS (8)
  - Abdominal pain [Recovered/Resolved]
  - Crying [Recovered/Resolved]
  - Agitation [Recovered/Resolved]
  - Rhinitis [Not Recovered/Not Resolved]
  - Respiratory disorder [Not Recovered/Not Resolved]
  - Wrong drug administered [Unknown]
  - Product quality issue [None]
  - Respiratory tract infection [None]
